FAERS Safety Report 21693968 (Version 2)
Quarter: 2023Q1

REPORT INFORMATION
  Report Type: Spontaneous
  Country: US (occurrence: US)
  Receive Date: 20221207
  Receipt Date: 20230320
  Transmission Date: 20230418
  Serious: No
  Sender: FDA-Public Use
  Company Number: US-BIOGEN-2021BI01061218

PATIENT
  Age: 51 Year
  Sex: Female

DRUGS (5)
  1. VUMERITY [Suspect]
     Active Substance: DIROXIMEL FUMARATE
     Indication: Multiple sclerosis
     Route: 050
     Dates: start: 20211008, end: 20211014
  2. VUMERITY [Suspect]
     Active Substance: DIROXIMEL FUMARATE
     Route: 050
     Dates: start: 20211015
  3. VUMERITY [Suspect]
     Active Substance: DIROXIMEL FUMARATE
     Route: 050
     Dates: start: 20211006
  4. VUMERITY [Suspect]
     Active Substance: DIROXIMEL FUMARATE
     Route: 050
     Dates: end: 20220429
  5. MODERNA COVID-19 VACCINE [Suspect]
     Active Substance: ELASOMERAN
     Indication: COVID-19 prophylaxis
     Route: 050
     Dates: end: 202111

REACTIONS (18)
  - Blood immunoglobulin E increased [Not Recovered/Not Resolved]
  - Hypoaesthesia [Not Recovered/Not Resolved]
  - Vaccination site hypoaesthesia [Not Recovered/Not Resolved]
  - Immunisation reaction [Unknown]
  - Amnesia [Not Recovered/Not Resolved]
  - Eczema infected [Not Recovered/Not Resolved]
  - Back injury [Unknown]
  - Band sensation [Unknown]
  - Coagulopathy [Recovered/Resolved with Sequelae]
  - Hemihypoaesthesia [Recovered/Resolved]
  - Vaccination site thrombosis [Recovered/Resolved]
  - Vertigo [Recovered/Resolved]
  - Balance disorder [Recovered/Resolved]
  - Dizziness [Recovered/Resolved]
  - Multiple sclerosis [Unknown]
  - Fall [Recovered/Resolved]
  - Flushing [Recovered/Resolved]
  - Nausea [Recovered/Resolved]

NARRATIVE: CASE EVENT DATE: 20211001
